FAERS Safety Report 19068830 (Version 1)
Quarter: 2021Q1

REPORT INFORMATION
  Report Type: Report from Study
  Country: US (occurrence: US)
  Receive Date: 20210329
  Receipt Date: 20210329
  Transmission Date: 20210420
  Serious: No
  Sender: FDA-Public Use
  Company Number: US-KYOWAKIRIN-2021BKK004731

PATIENT

DRUGS (1)
  1. CRYSVITA [Suspect]
     Active Substance: BUROSUMAB-TWZA
     Indication: X-LINKED CHROMOSOMAL DISORDER
     Dosage: 60 MG, 1X/2 WEEKS
     Route: 058
     Dates: start: 201807, end: 202103

REACTIONS (1)
  - Vitamin D decreased [Recovering/Resolving]

NARRATIVE: CASE EVENT DATE: 202103
